FAERS Safety Report 9573230 (Version 2)
Quarter: 2013Q4

REPORT INFORMATION
  Report Type: Spontaneous
  Country: US (occurrence: US)
  Receive Date: 20131001
  Receipt Date: 20131001
  Transmission Date: 20140711
  Serious: No
  Sender: FDA-Public Use
  Company Number: US-PURDUE-USA-2012-0082196

PATIENT
  Age: 51 Year
  Sex: Female
  Weight: 110.66 kg

DRUGS (2)
  1. BUTRANS [Suspect]
     Indication: PAIN
     Dosage: 20 MCG/HR, UNK
     Route: 062
     Dates: start: 20111025, end: 20111115
  2. BUTRANS [Suspect]
     Indication: INTERVERTEBRAL DISC DEGENERATION

REACTIONS (3)
  - Headache [Recovered/Resolved]
  - Dermatitis [Unknown]
  - Inadequate analgesia [Unknown]
